FAERS Safety Report 17449714 (Version 1)
Quarter: 2020Q1

REPORT INFORMATION
  Report Type: Spontaneous
  Country: US (occurrence: US)
  Receive Date: 20200224
  Receipt Date: 20200224
  Transmission Date: 20200409
  Serious: Yes (Life-Threatening, Other)
  Sender: FDA-Public Use
  Company Number: US-GLAND PHARMA LIMITED-2080812

PATIENT
  Age: 75 Year
  Sex: Female

DRUGS (7)
  1. ACETYLSALICYLIC ACID [Concomitant]
     Active Substance: ASPIRIN
  2. DOCUSATE [Concomitant]
     Active Substance: DOCUSATE
  3. SIMVASTATIN. [Concomitant]
     Active Substance: SIMVASTATIN
  4. DONEPEZIL. [Suspect]
     Active Substance: DONEPEZIL
  5. MELATONIN [Concomitant]
     Active Substance: MELATONIN
  6. LOSARTAN. [Concomitant]
     Active Substance: LOSARTAN
  7. HALOPERIDOL DECANOATE. [Suspect]
     Active Substance: HALOPERIDOL DECANOATE
     Indication: NEUROPSYCHIATRIC SYMPTOMS
     Route: 065

REACTIONS (4)
  - Off label use [Unknown]
  - Drug interaction [Unknown]
  - Sinus bradycardia [Recovered/Resolved]
  - Hypotension [Recovered/Resolved]
